FAERS Safety Report 10204218 (Version 1)
Quarter: 2014Q2

REPORT INFORMATION
  Report Type: Spontaneous
  Country: ES (occurrence: ES)
  Receive Date: 20140529
  Receipt Date: 20140529
  Transmission Date: 20141212
  Serious: Yes (Other)
  Sender: FDA-Public Use
  Company Number: ES-ACTAVIS-2014-11414

PATIENT
  Age: 68 Year
  Sex: Male

DRUGS (2)
  1. DOCETAXEL (UNKNOWN) [Suspect]
     Indication: LUNG SQUAMOUS CELL CARCINOMA METASTATIC
     Dosage: UNKNOWN, EVERY 3 WEEKS
     Route: 042
  2. CISPLATIN [Concomitant]
     Indication: LUNG SQUAMOUS CELL CARCINOMA METASTATIC
     Dosage: UNKNOWN, EVERY 3 WEEKS
     Route: 065

REACTIONS (3)
  - Eccrine squamous syringometaplasia [Recovering/Resolving]
  - Dermatitis [Recovering/Resolving]
  - Infusion site extravasation [Recovering/Resolving]
